FAERS Safety Report 9814840 (Version 1)
Quarter: 2014Q1

REPORT INFORMATION
  Report Type: Spontaneous
  Country: US (occurrence: US)
  Receive Date: 20140113
  Receipt Date: 20140113
  Transmission Date: 20141002
  Serious: Yes (Other)
  Sender: FDA-Public Use
  Company Number: US-GLAXOSMITHKLINE-A1055993A

PATIENT
  Sex: Female

DRUGS (2)
  1. ADVAIR [Suspect]
     Indication: CHRONIC OBSTRUCTIVE PULMONARY DISEASE
     Route: 055
     Dates: start: 201205
  2. CONCURRENT MEDICATIONS [Concomitant]

REACTIONS (3)
  - Oral candidiasis [Recovered/Resolved]
  - Tongue coated [Recovered/Resolved]
  - Treatment noncompliance [Unknown]
